FAERS Safety Report 18547059 (Version 1)
Quarter: 2020Q4

REPORT INFORMATION
  Report Type: Spontaneous
  Country: JP (occurrence: JP)
  Receive Date: 20201125
  Receipt Date: 20201125
  Transmission Date: 20210114
  Serious: Yes (Other)
  Sender: FDA-Public Use
  Company Number: JP-FERRINGPH-2020FE08363

PATIENT
  Sex: Male

DRUGS (2)
  1. GONAX [Suspect]
     Active Substance: DEGARELIX
     Dosage: 240 MG
     Route: 058
  2. GONAX [Suspect]
     Active Substance: DEGARELIX
     Indication: PROSTATE CANCER
     Dosage: 80 MG, EVERY 4 WEEKS
     Route: 058

REACTIONS (6)
  - Headache [Recovering/Resolving]
  - Tinnitus [Recovering/Resolving]
  - Sleep disorder [Recovering/Resolving]
  - Injection site pain [Recovering/Resolving]
  - Metastases to bone [Unknown]
  - Injection site mass [Not Recovered/Not Resolved]
